FAERS Safety Report 10184748 (Version 1)
Quarter: 2014Q2

REPORT INFORMATION
  Report Type: Spontaneous
  Country: US (occurrence: None)
  Receive Date: 20140520
  Receipt Date: 20140520
  Transmission Date: 20141212
  Serious: Yes (Hospitalization)
  Sender: FDA-Public Use
  Company Number: None

PATIENT
  Age: 68 Year
  Sex: Male

DRUGS (12)
  1. TACROLIMUS [Suspect]
     Indication: PROPHYLAXIS AGAINST GRAFT VERSUS HOST DISEASE
     Route: 048
     Dates: start: 20120910, end: 20120923
  2. HEPARIN [Concomitant]
  3. CEFEPIME [Concomitant]
  4. ENALAPRIL [Concomitant]
  5. FILGRASTIM [Concomitant]
  6. GLIPIZIDE [Concomitant]
  7. METOPROLOL [Concomitant]
  8. PRAVASTATIN [Concomitant]
  9. TAMSULOSIN [Concomitant]
  10. VALACYCLOVIR [Concomitant]
  11. VITAMIN E [Concomitant]
  12. ONDANSETRON [Concomitant]

REACTIONS (7)
  - Sick sinus syndrome [None]
  - Atrial fibrillation [None]
  - Blood creatinine increased [None]
  - Haemodialysis [None]
  - Febrile neutropenia [None]
  - Unevaluable event [None]
  - Immunosuppressant drug level increased [None]
